FAERS Safety Report 23311330 (Version 3)
Quarter: 2023Q4

REPORT INFORMATION
  Report Type: Spontaneous
  Country: US (occurrence: US)
  Receive Date: 20231219
  Receipt Date: 20231228
  Transmission Date: 20240110
  Serious: Yes (Other)
  Sender: FDA-Public Use
  Company Number: US-SA-SAC20231212000109

PATIENT
  Age: 61 Year
  Sex: Male

DRUGS (1)
  1. DUPIXENT [Suspect]
     Active Substance: DUPILUMAB
     Indication: Dermatitis atopic
     Dosage: 300 MG, QOW
     Route: 058
     Dates: start: 202109

REACTIONS (6)
  - Pneumonia [Unknown]
  - Respiratory syncytial virus infection [Unknown]
  - Back pain [Unknown]
  - Constipation [Unknown]
  - Herpes zoster [Unknown]
  - Nasopharyngitis [Not Recovered/Not Resolved]
